FAERS Safety Report 12934294 (Version 2)
Quarter: 2016Q4

REPORT INFORMATION
  Report Type: Report from Study
  Country: BR (occurrence: BR)
  Receive Date: 20161111
  Receipt Date: 20161214
  Transmission Date: 20170207
  Serious: Yes (Hospitalization, Other)
  Sender: FDA-Public Use
  Company Number: PHHY2016BR154748

PATIENT
  Sex: Male
  Weight: 82 kg

DRUGS (1)
  1. EXJADE [Suspect]
     Active Substance: DEFERASIROX
     Indication: IRON OVERLOAD
     Dosage: 500 MG, QD
     Route: 048

REACTIONS (8)
  - Eating disorder [Unknown]
  - Abdominal pain [Unknown]
  - Weight decreased [Unknown]
  - Abdominal infection [Unknown]
  - Visual impairment [Unknown]
  - Anaemia [Unknown]
  - Retinal disorder [Unknown]
  - Pain [Unknown]
